FAERS Safety Report 10363922 (Version 1)
Quarter: 2014Q3

REPORT INFORMATION
  Report Type: Spontaneous
  Country: RO (occurrence: None)
  Receive Date: 20140801
  Receipt Date: 20140801
  Transmission Date: 20150326
  Serious: Yes (Hospitalization)
  Sender: FDA-Public Use
  Company Number: R0-016494

PATIENT
  Age: 15 Year
  Sex: Male

DRUGS (5)
  1. MINIRIN [Suspect]
     Active Substance: DESMOPRESSIN ACETATE
     Indication: DIABETES INSIPIDUS
     Route: 045
  2. TESTOSTERONE. [Concomitant]
     Active Substance: TESTOSTERONE
  3. BROMOCRIPTINE [Concomitant]
     Active Substance: BROMOCRIPTINE
  4. L-THYROXINE [Concomitant]
     Active Substance: LEVOTHYROXINE
  5. HCG [Concomitant]
     Active Substance: GONADOTROPHIN, CHORIONIC

REACTIONS (8)
  - Deep vein thrombosis [None]
  - Sinus disorder [None]
  - Hypopituitarism [None]
  - Obesity [None]
  - Delayed puberty [None]
  - Thrombosis [None]
  - Growth retardation [None]
  - Germ cell cancer [None]
